FAERS Safety Report 9605212 (Version 1)
Quarter: 2013Q4

REPORT INFORMATION
  Report Type: Spontaneous
  Country: GB (occurrence: GB)
  Receive Date: 20131008
  Receipt Date: 20131008
  Transmission Date: 20140711
  Serious: Yes (Hospitalization, Other)
  Sender: FDA-Public Use
  Company Number: GB-TEVA-436529ISR

PATIENT
  Age: 52 Year
  Sex: Male
  Weight: 90 kg

DRUGS (18)
  1. TRIMETHOPRIM [Suspect]
     Dates: start: 20130917
  2. AMITRIPTYLINE HYDROCHLORIDE [Concomitant]
     Dates: start: 20130528, end: 20130625
  3. AMITRIPTYLINE HYDROCHLORIDE [Concomitant]
     Dates: start: 20130731, end: 20130828
  4. BECLOMETASONE [Concomitant]
     Dates: start: 20130528, end: 20130625
  5. CITALOPRAM [Concomitant]
     Dates: start: 20130528, end: 20130625
  6. CITALOPRAM [Concomitant]
     Dates: start: 20130716, end: 20130909
  7. LORATADINE [Concomitant]
     Dates: start: 20130528, end: 20130627
  8. MONTELUKAST [Concomitant]
     Dates: start: 20130528, end: 20130625
  9. MONTELUKAST [Concomitant]
     Dates: start: 20130708, end: 20130828
  10. RILUZOLE [Concomitant]
     Dates: start: 20130528, end: 20130723
  11. SYMBICORT [Concomitant]
     Dates: start: 20130528, end: 20130727
  12. SYMBICORT [Concomitant]
     Dates: start: 20130812
  13. WARFARIN SODIUM [Concomitant]
     Dates: start: 20130528, end: 20130719
  14. AMOXICILLIN [Concomitant]
     Dates: start: 20130716, end: 20130723
  15. DALTEPARIN [Concomitant]
     Dates: start: 20130807, end: 20130811
  16. MACROGOL [Concomitant]
     Dates: start: 20130906
  17. DERMOL [Concomitant]
     Dates: start: 20130906
  18. HIBISCRUB [Concomitant]
     Dates: start: 20130906, end: 20130909

REACTIONS (2)
  - Skin bacterial infection [Recovered/Resolved]
  - Meningitis aseptic [Unknown]
